FAERS Safety Report 9429274 (Version 2)
Quarter: 2013Q3

REPORT INFORMATION
  Report Type: Spontaneous
  Country: US (occurrence: US)
  Receive Date: 20130730
  Receipt Date: 20130830
  Transmission Date: 20140515
  Serious: No
  Sender: FDA-Public Use
  Company Number: US-009507513-1307USA001648

PATIENT
  Age: 55 Year
  Sex: Male

DRUGS (1)
  1. PEGINTRON [Suspect]
     Indication: LYMPHANGIOMA
     Dosage: 120 MICROGRAM, QW
     Dates: start: 201005

REACTIONS (1)
  - Diarrhoea [Recovered/Resolved]
